FAERS Safety Report 18211951 (Version 1)
Quarter: 2020Q3

REPORT INFORMATION
  Report Type: Spontaneous
  Country: FR (occurrence: FR)
  Receive Date: 20200831
  Receipt Date: 20200831
  Transmission Date: 20201103
  Serious: Yes (Other)
  Sender: FDA-Public Use
  Company Number: FR-ROCHE-2666690

PATIENT
  Sex: Female

DRUGS (2)
  1. ZYKADIA [Concomitant]
     Active Substance: CERITINIB
  2. ALECENSA [Suspect]
     Active Substance: ALECTINIB HYDROCHLORIDE
     Indication: NEOPLASM MALIGNANT
     Route: 065

REACTIONS (4)
  - Fluid retention [Unknown]
  - Pulmonary oedema [Unknown]
  - Myalgia [Unknown]
  - Dyspnoea [Unknown]
